FAERS Safety Report 25996350 (Version 1)
Quarter: 2025Q4

REPORT INFORMATION
  Report Type: Spontaneous
  Country: EU (occurrence: EU)
  Receive Date: 20251104
  Receipt Date: 20251104
  Transmission Date: 20260117
  Serious: Yes (Disabling, Other)
  Sender: NOVARTIS
  Company Number: EU-SA-2025SA303608

PATIENT
  Age: 53 Year
  Sex: Female

DRUGS (27)
  1. TEGRETOL [Suspect]
     Active Substance: CARBAMAZEPINE
     Indication: Product used for unknown indication
     Dosage: 400 MG, Q12H (400 MG MORNING AND EVENING)
     Route: 065
  2. TEGRETOL [Suspect]
     Active Substance: CARBAMAZEPINE
     Dosage: 100 MG, Q8H (100 MG, TID)
     Route: 065
  3. TEGRETOL [Suspect]
     Active Substance: CARBAMAZEPINE
     Dosage: 200 MG, Q8H (200 MG, TID)
     Route: 065
  4. GABAPENTIN [Suspect]
     Active Substance: GABAPENTIN
     Indication: Product used for unknown indication
     Dosage: UNK
     Route: 065
  5. CHLORMADINONE ACETATE [Suspect]
     Active Substance: CHLORMADINONE ACETATE
     Indication: Product used for unknown indication
     Dosage: 10 MG (10 MG, 20 DAYS/MONTH)
     Route: 065
     Dates: start: 20130221
  6. CHLORMADINONE ACETATE [Suspect]
     Active Substance: CHLORMADINONE ACETATE
     Dosage: 10 MG
     Route: 065
     Dates: start: 20130702
  7. CHLORMADINONE ACETATE [Suspect]
     Active Substance: CHLORMADINONE ACETATE
     Dosage: 10 MG (10 MG, 20 DAYS/MONTH)
     Route: 065
     Dates: start: 20140409
  8. CHLORMADINONE ACETATE [Suspect]
     Active Substance: CHLORMADINONE ACETATE
     Dosage: 10 MG
     Route: 065
     Dates: start: 20141216
  9. CHLORMADINONE ACETATE [Suspect]
     Active Substance: CHLORMADINONE ACETATE
     Dosage: 10 MG
     Route: 065
     Dates: start: 20150408
  10. CHLORMADINONE ACETATE [Suspect]
     Active Substance: CHLORMADINONE ACETATE
     Dosage: 10 MG
     Route: 065
     Dates: start: 20160222
  11. CHLORMADINONE ACETATE [Suspect]
     Active Substance: CHLORMADINONE ACETATE
     Dosage: 10 MG
     Route: 065
     Dates: start: 20160616
  12. CHLORMADINONE ACETATE [Suspect]
     Active Substance: CHLORMADINONE ACETATE
     Dosage: UNK
     Route: 065
     Dates: start: 20161116
  13. CHLORMADINONE ACETATE [Suspect]
     Active Substance: CHLORMADINONE ACETATE
     Dosage: UNK (20 DAYS/MONTH)
     Route: 065
     Dates: start: 20170601
  14. CHLORMADINONE ACETATE [Suspect]
     Active Substance: CHLORMADINONE ACETATE
     Dosage: UNK (20 DAYS/MONTH)
     Route: 065
     Dates: start: 20170601
  15. CHLORMADINONE ACETATE [Suspect]
     Active Substance: CHLORMADINONE ACETATE
     Dosage: UNK
     Route: 065
     Dates: start: 20180410
  16. CHLORMADINONE ACETATE [Suspect]
     Active Substance: CHLORMADINONE ACETATE
     Dosage: 10 MG
     Route: 065
     Dates: start: 20180827
  17. CHLORMADINONE ACETATE [Suspect]
     Active Substance: CHLORMADINONE ACETATE
     Dosage: UNK
     Route: 065
     Dates: start: 20190425
  18. CHLORMADINONE ACETATE [Suspect]
     Active Substance: CHLORMADINONE ACETATE
     Dosage: 10 MG
     Route: 065
     Dates: start: 20191031, end: 20200102
  19. CHLORMADINONE ACETATE [Suspect]
     Active Substance: CHLORMADINONE ACETATE
     Indication: Product used for unknown indication
     Dosage: 10 MG
     Route: 065
     Dates: start: 20150408
  20. CHLORMADINONE ACETATE [Suspect]
     Active Substance: CHLORMADINONE ACETATE
     Indication: Product used for unknown indication
     Dosage: 10 MG
     Route: 065
     Dates: start: 20170601
  21. CHLORMADINONE ACETATE [Suspect]
     Active Substance: CHLORMADINONE ACETATE
     Dosage: 10 MG
     Route: 065
     Dates: start: 20180827
  22. AMITRIPTYLINE HYDROCHLORIDE [Concomitant]
     Active Substance: AMITRIPTYLINE HYDROCHLORIDE
     Indication: Pain
     Dosage: UNK
     Route: 065
  23. ALPRAZOLAM [Concomitant]
     Active Substance: ALPRAZOLAM
     Indication: Product used for unknown indication
     Dosage: UNK
     Route: 065
  24. IMOVANE [Concomitant]
     Active Substance: ZOPICLONE
     Indication: Product used for unknown indication
     Dosage: UNK
     Route: 065
  25. TRILEPTAL [Concomitant]
     Active Substance: OXCARBAZEPINE
     Indication: Product used for unknown indication
     Dosage: UNK
     Route: 065
  26. RIVOTRIL [Concomitant]
     Active Substance: CLONAZEPAM
     Indication: Product used for unknown indication
     Dosage: UNK
     Route: 065
  27. PREDNISONE [Concomitant]
     Active Substance: PREDNISONE
     Indication: Product used for unknown indication
     Dosage: UNK
     Route: 065
     Dates: start: 20250412

REACTIONS (25)
  - Meningioma [Unknown]
  - Seizure [Recovering/Resolving]
  - Neurological symptom [Unknown]
  - Brain oedema [Unknown]
  - Paraesthesia [Unknown]
  - Hypoaesthesia [Unknown]
  - Depression [Unknown]
  - Asthenia [Unknown]
  - Hypoacusis [Unknown]
  - Cognitive disorder [Unknown]
  - Affective disorder [Unknown]
  - Affect lability [Unknown]
  - Neuralgia [Unknown]
  - Eye pain [Unknown]
  - Epistaxis [Unknown]
  - Aphasia [Unknown]
  - Psychomotor retardation [Unknown]
  - Diplopia [Unknown]
  - Trigeminal neuralgia [Unknown]
  - Sensory loss [Unknown]
  - Somnolence [Unknown]
  - Memory impairment [Unknown]
  - Weight increased [Unknown]
  - Headache [Unknown]
  - Tinnitus [Unknown]
